FAERS Safety Report 25332558 (Version 1)
Quarter: 2025Q2

REPORT INFORMATION
  Report Type: Report from Study
  Country: US (occurrence: US)
  Receive Date: 20250519
  Receipt Date: 20250519
  Transmission Date: 20250716
  Serious: Yes (Hospitalization, Other)
  Sender: GILEAD
  Company Number: US-GILEAD-2025-0711108

PATIENT
  Age: 49 Year
  Sex: Female

DRUGS (1)
  1. SOFOSBUVIR\VELPATASVIR [Suspect]
     Active Substance: SOFOSBUVIR\VELPATASVIR
     Indication: Hepatitis C
     Dosage: UNK, QD (400/100 MG)
     Route: 048
     Dates: start: 20250208

REACTIONS (15)
  - Myelitis transverse [Not Recovered/Not Resolved]
  - Spinal cord infection [Unknown]
  - Bell^s palsy [Unknown]
  - Hypoaesthesia [Unknown]
  - Paraesthesia [Unknown]
  - Pain in extremity [Unknown]
  - Hypertension [Not Recovered/Not Resolved]
  - Nephropathy [Not Recovered/Not Resolved]
  - Arthritis [Unknown]
  - Post procedural infection [Unknown]
  - Dry mouth [Unknown]
  - Bladder disorder [Unknown]
  - Loss of personal independence in daily activities [Unknown]
  - Dental caries [Unknown]
  - Diarrhoea [Unknown]
